FAERS Safety Report 8487115-6 (Version None)
Quarter: 2012Q3

REPORT INFORMATION
  Report Type: 
  Country: None (occurrence: None)
  Receive Date: 20120704
  Receipt Date: 20120702
  Transmission Date: 20120928
  Serious: Yes (Death, Other)
  Sender: FDA-Public Use
  Company Number: PHHY2012MX039768

PATIENT
  Sex: Female

DRUGS (3)
  1. NOVOTIRAL [Concomitant]
     Dosage: 0.5 DF, UNK
  2. ALPRAZOLAM [Concomitant]
     Dates: start: 20120401
  3. DIOVAN [Suspect]
     Indication: HYPERTENSION
     Dosage: 1 DF (80 MG), PER DAY
     Dates: start: 20050701

REACTIONS (4)
  - ANXIETY [None]
  - DEATH [None]
  - DEPRESSION [None]
  - OBSESSIVE THOUGHTS [None]
